FAERS Safety Report 5570103-7 (Version None)
Quarter: 2007Q4

REPORT INFORMATION
  Report Type: 
  Country: None (occurrence: None)
  Receive Date: 20071220
  Receipt Date: 20071212
  Transmission Date: 20080405
  Serious: Yes (Other)
  Sender: FDA-Public Use
  Company Number: PFIZER INC-2007103616

PATIENT
  Age: 56 Year
  Sex: Female
  Weight: 63.9 kg

DRUGS (1)
  1. SUTENT [Suspect]
     Indication: OVARIAN CANCER
     Route: 048

REACTIONS (1)
  - LACRIMATION INCREASED [None]
